FAERS Safety Report 6172920-1 (Version None)
Quarter: 2009Q2

REPORT INFORMATION
  Report Type: 
  Country: None (occurrence: None)
  Receive Date: 20090430
  Receipt Date: 20090427
  Transmission Date: 20091009
  Serious: Yes (Other)
  Sender: FDA-Public Use
  Company Number: PHEH2009US03676

PATIENT
  Sex: Female

DRUGS (3)
  1. TEGRETOL-XR [Suspect]
     Indication: COMPLEX PARTIAL SEIZURES
     Dosage: 200 MG, BID
     Route: 048
     Dates: start: 20060701
  2. FOLATE SODIUM [Concomitant]
     Indication: DRUG THERAPY
     Dosage: 1 MG, QD
  3. VITAMIN B NOS [Concomitant]
     Dosage: 1 DF, QD

REACTIONS (2)
  - CATARACT [None]
  - CATARACT CORTICAL [None]
